FAERS Safety Report 9927770 (Version 2)
Quarter: 2014Q2

REPORT INFORMATION
  Report Type: Report from Study
  Country: US (occurrence: US)
  Receive Date: 20140227
  Receipt Date: 20140515
  Transmission Date: 20141212
  Serious: Yes (Hospitalization, Other)
  Sender: FDA-Public Use
  Company Number: US-ROCHE-1338575

PATIENT
  Age: 77 Year
  Sex: Male

DRUGS (24)
  1. LUCENTIS [Suspect]
     Indication: DIABETIC RETINOPATHY
     Dosage: OD
     Route: 050
     Dates: start: 20090306
  2. LUCENTIS [Suspect]
     Indication: DIABETIC RETINAL OEDEMA
     Dosage: PRN
     Route: 050
     Dates: start: 20120306, end: 20120306
  3. LUCENTIS [Suspect]
     Dosage: PRN
     Route: 050
     Dates: start: 20120202, end: 20120202
  4. AVASTIN [Suspect]
     Indication: PRODUCT USED FOR UNKNOWN INDICATION
     Route: 065
  5. HUMALOG [Concomitant]
     Dosage: 15 UNITS/ML BEFORE EACH MEAL
     Route: 065
  6. LIPITOR [Concomitant]
     Indication: HYPERLIPIDAEMIA
     Route: 048
  7. ASPIRIN [Concomitant]
     Route: 065
  8. BROMFENAC [Concomitant]
     Dosage: 0.09%
     Route: 047
  9. PRILOSEC [Concomitant]
     Route: 065
  10. HYDRALAZINE [Concomitant]
     Route: 065
  11. SIMVASTIN [Concomitant]
     Route: 065
  12. TRANDATE [Concomitant]
     Route: 065
  13. COLACE [Concomitant]
     Route: 065
  14. WELLBUTRIN [Concomitant]
     Route: 065
  15. BETADINE [Concomitant]
     Route: 065
  16. MACUGEN [Concomitant]
     Route: 050
     Dates: start: 20120417
  17. LIDOCAINE [Concomitant]
     Dosage: 2%
     Route: 057
  18. ZYMAR [Concomitant]
     Dosage: QID OD
     Route: 065
  19. LEVEMIR [Concomitant]
     Route: 065
  20. LABETALOL [Concomitant]
     Route: 065
  21. PANTOPRAZOLE [Concomitant]
     Route: 065
  22. RENVELA [Concomitant]
     Route: 065
  23. VIGAMOX [Concomitant]
     Dosage: 1 GTT QID OD
     Route: 065
  24. GENTAMYCIN SULFATE [Concomitant]
     Dosage: QID OD
     Route: 047

REACTIONS (18)
  - Transient ischaemic attack [Recovering/Resolving]
  - Cerebrovascular accident [Unknown]
  - Macular oedema [Unknown]
  - Retinal oedema [Unknown]
  - Vision blurred [Unknown]
  - Retinal aneurysm [Unknown]
  - Metamorphopsia [Unknown]
  - Macular fibrosis [Unknown]
  - Cataract [Unknown]
  - Intraocular lens implant [Unknown]
  - Blood glucose fluctuation [Unknown]
  - Visual acuity reduced [Unknown]
  - Optic atrophy [Unknown]
  - Blood glucose increased [Unknown]
  - Vitreous detachment [Unknown]
  - Retinal haemorrhage [Unknown]
  - Retinal degeneration [Unknown]
  - Off label use [Unknown]
